FAERS Safety Report 12409556 (Version 1)
Quarter: 2016Q2

REPORT INFORMATION
  Report Type: Report from Study
  Country: GT (occurrence: GT)
  Receive Date: 20160526
  Receipt Date: 20160526
  Transmission Date: 20160815
  Serious: Yes (Hospitalization, Other)
  Sender: FDA-Public Use
  Company Number: GT-ABBVIE-16P-069-1638225-00

PATIENT
  Age: 39 Year
  Sex: Female

DRUGS (1)
  1. ZEMPLAR [Suspect]
     Active Substance: PARICALCITOL
     Indication: PRODUCT USED FOR UNKNOWN INDICATION
     Route: 065
     Dates: start: 201602

REACTIONS (7)
  - Foetal death [Unknown]
  - Exposure during pregnancy [Unknown]
  - Migraine [Unknown]
  - Vaginal haemorrhage [Unknown]
  - Hypersensitivity [Unknown]
  - Headache [Unknown]
  - Twin pregnancy [Unknown]

NARRATIVE: CASE EVENT DATE: 201605
